FAERS Safety Report 24086160 (Version 1)
Quarter: 2024Q3

REPORT INFORMATION
  Report Type: Other
  Country: TR (occurrence: TR)
  Receive Date: 20240712
  Receipt Date: 20240712
  Transmission Date: 20241017
  Serious: Yes (Death, Hospitalization)
  Sender: GE HEALTHCARE
  Company Number: TR-GE HEALTHCARE-2024CSU007491

PATIENT
  Age: 60 Year
  Sex: Male

DRUGS (4)
  1. OMNIPAQUE [Suspect]
     Active Substance: IOHEXOL
     Indication: Computerised tomogram
     Dosage: UNK, TOTAL
     Route: 065
     Dates: start: 20240607, end: 20240607
  2. DIOVAN [Concomitant]
     Active Substance: VALSARTAN
     Dosage: 160 MG
  3. METOPROLOL SUCCINATE [Concomitant]
     Active Substance: METOPROLOL SUCCINATE
     Dosage: 100 MG
  4. ALDACTAZIDE [Concomitant]
     Active Substance: HYDROCHLOROTHIAZIDE\SPIRONOLACTONE
     Dosage: 25 MG

REACTIONS (5)
  - Aspiration [Fatal]
  - Respiratory arrest [Fatal]
  - Cardiac arrest [Fatal]
  - Anaphylactic reaction [Fatal]
  - Nausea [Unknown]

NARRATIVE: CASE EVENT DATE: 20240607
